FAERS Safety Report 5498457-0 (Version None)
Quarter: 2007Q4

REPORT INFORMATION
  Report Type: 
  Country: None (occurrence: None)
  Receive Date: 20071025
  Receipt Date: 20071016
  Transmission Date: 20080405
  Serious: Yes (Other)
  Sender: FDA-Public Use
  Company Number: DO-ABBOTT-07P-CLI-0420990-00

PATIENT
  Age: 43 Year
  Sex: Female
  Weight: 61.29 kg

DRUGS (2)
  1. EPIVAL ER [Suspect]
     Indication: DEPRESSION
     Route: 048
  2. TROPANIL [Concomitant]
     Indication: NIGHTMARE
     Route: 048

REACTIONS (6)
  - BLOOD TRIGLYCERIDES INCREASED [None]
  - HEPATIC STEATOSIS [None]
  - HYPERCHOLESTEROLAEMIA [None]
  - HYPERGLYCAEMIA [None]
  - VISION BLURRED [None]
  - WEIGHT INCREASED [None]
